FAERS Safety Report 4914340-0 (Version None)
Quarter: 2006Q1

REPORT INFORMATION
  Report Type: 
  Country: None (occurrence: None)
  Receive Date: 20060213
  Receipt Date: 20060202
  Transmission Date: 20060701
  Serious: Yes (Death)
  Sender: FDA-Public Use
  Company Number: 012108

PATIENT
  Age: 58 Year
  Sex: Female

DRUGS (5)
  1. PRIALT [Suspect]
     Indication: PAIN
     Dosage: 0.1 UG; 0.3 UG; 0.36 UG, ONCE/HOUR, INTRATHECAL
     Route: 037
     Dates: start: 20050425, end: 20050518
  2. PRIALT [Suspect]
     Indication: PAIN
     Dosage: 0.1 UG; 0.3 UG; 0.36 UG, ONCE/HOUR, INTRATHECAL
     Route: 037
     Dates: start: 20050518, end: 20050521
  3. PRIALT [Suspect]
     Indication: PAIN
     Dosage: 0.1 UG; 0.3 UG; 0.36 UG, ONCE/HOUR, INTRATHECAL
     Route: 037
     Dates: start: 20050521
  4. DILAUDID [Concomitant]
  5. BUPIVACAINE [Concomitant]

REACTIONS (2)
  - MALIGNANT NEOPLASM PROGRESSION [None]
  - SKIN ULCER [None]
